FAERS Safety Report 4323817-0 (Version None)
Quarter: 2004Q1

REPORT INFORMATION
  Report Type: 
  Country: None (occurrence: None)
  Receive Date: 20040326
  Receipt Date: 20040319
  Transmission Date: 20041129
  Serious: Yes (Other)
  Sender: FDA-Public Use
  Company Number: 200410609DE

PATIENT
  Sex: 0

DRUGS (2)
  1. LANTUS [Suspect]
     Indication: DIABETES MELLITUS
  2. HUMALOG [Concomitant]
     Indication: DIABETES MELLITUS

REACTIONS (2)
  - MEDICATION ERROR [None]
  - RENAL NEOPLASM [None]
